FAERS Safety Report 7794875-6 (Version None)
Quarter: 2011Q3

REPORT INFORMATION
  Report Type: 
  Country: None (occurrence: None)
  Receive Date: 20110929
  Receipt Date: 20110922
  Transmission Date: 20111222
  Serious: Yes (Hospitalization)
  Sender: FDA-Public Use
  Company Number: WAES 1109USA02570

PATIENT
  Age: 60 Year
  Sex: Male

DRUGS (10)
  1. SIMVASTATIN [Concomitant]
  2. JANUVIA [Suspect]
     Indication: TYPE 2 DIABETES MELLITUS
     Dosage: PO
     Route: 048
     Dates: start: 20090825, end: 20090830
  3. RISPERIDONE [Suspect]
     Indication: TYPE 2 DIABETES MELLITUS
     Dosage: PO
     Route: 048
     Dates: start: 20091008
  4. METFORMIN HYDROCHLORIDE [Concomitant]
  5. RISPERIDONE [Suspect]
     Indication: TYPE 2 DIABETES MELLITUS
     Dosage: PO
     Route: 048
     Dates: start: 20090825, end: 20090830
  6. CLONAZEPAM [Concomitant]
  7. HYDROCHLOROTHIAZIDE [Concomitant]
  8. LOXAPINE [Concomitant]
  9. TRANDOLAPRIL [Concomitant]
  10. TAB LAF237 (VILDAGLIPTIN) [Suspect]
     Indication: TYPE 2 DIABETES MELLITUS
     Dosage: PO
     Route: 048
     Dates: start: 20090825, end: 20090830

REACTIONS (22)
  - MENTAL DISORDER [None]
  - SCHIZOPHRENIA [None]
  - TACHYPHRENIA [None]
  - TARDIVE DYSKINESIA [None]
  - POOR QUALITY SLEEP [None]
  - EXTRAPYRAMIDAL DISORDER [None]
  - AFFECTIVE DISORDER [None]
  - DELUSION [None]
  - RESTLESSNESS [None]
  - OVERDOSE [None]
  - AGORAPHOBIA [None]
  - POVERTY OF THOUGHT CONTENT [None]
  - DISEASE PROGRESSION [None]
  - PERSECUTORY DELUSION [None]
  - DECREASED APPETITE [None]
  - SCHIZOPHRENIA, PARANOID TYPE [None]
  - HALLUCINATION [None]
  - SUICIDAL IDEATION [None]
  - DEPRESSED MOOD [None]
  - HALLUCINATION, AUDITORY [None]
  - ASTHENIA [None]
  - CONCOMITANT DISEASE PROGRESSION [None]
